FAERS Safety Report 18312238 (Version 1)
Quarter: 2020Q3

REPORT INFORMATION
  Report Type: Spontaneous
  Country: US (occurrence: US)
  Receive Date: 20200925
  Receipt Date: 20200925
  Transmission Date: 20201103
  Serious: No
  Sender: FDA-Public Use
  Company Number: US-TEVA-2020-US-1831821

PATIENT
  Sex: Female

DRUGS (14)
  1. COPAXONE [Suspect]
     Active Substance: GLATIRAMER ACETATE
     Indication: MULTIPLE SCLEROSIS
     Dosage: FORM STRENGTH: UNKNOWN
     Route: 065
  2. FLUOXETINE [Concomitant]
     Active Substance: FLUOXETINE HYDROCHLORIDE
  3. FLEXERIL [Concomitant]
     Active Substance: CYCLOBENZAPRINE HYDROCHLORIDE
  4. EMGALITY [Concomitant]
     Active Substance: GALCANEZUMAB-GNLM
  5. ATORVASTATIN [Concomitant]
     Active Substance: ATORVASTATIN
  6. MODAFINIL. [Concomitant]
     Active Substance: MODAFINIL
  7. SUMATRIPTAN. [Concomitant]
     Active Substance: SUMATRIPTAN
  8. OLMESARTAN [Concomitant]
     Active Substance: OLMESARTAN
  9. NITROFURANTOIN. [Concomitant]
     Active Substance: NITROFURANTOIN
  10. TOPIRAMATE. [Concomitant]
     Active Substance: TOPIRAMATE
  11. AMPYRA [Concomitant]
     Active Substance: DALFAMPRIDINE
  12. CLONAZEPAM GENERIC [Concomitant]
  13. OCREVUS [Concomitant]
     Active Substance: OCRELIZUMAB
  14. BACLOFEN. [Concomitant]
     Active Substance: BACLOFEN

REACTIONS (3)
  - Alopecia [Unknown]
  - Malaise [Unknown]
  - Pain [Unknown]
